FAERS Safety Report 24687642 (Version 1)
Quarter: 2024Q4

REPORT INFORMATION
  Report Type: Spontaneous
  Country: US (occurrence: None)
  Receive Date: 20241202
  Receipt Date: 20241202
  Transmission Date: 20250114
  Serious: No
  Sender: Public
  Company Number: None

PATIENT
  Age: 31 Year
  Sex: Female

DRUGS (3)
  1. BUPROPION HYDROCHLORIDE [Suspect]
     Active Substance: BUPROPION HYDROCHLORIDE
     Indication: Anxiety
     Dosage: 1 TABLET TWICE A DAY ORAL?
     Route: 048
     Dates: start: 20241120
  2. BUPROPION HYDROCHLORIDE [Suspect]
     Active Substance: BUPROPION HYDROCHLORIDE
     Indication: Depression
  3. DULOXETINE [Concomitant]
     Active Substance: DULOXETINE

REACTIONS (4)
  - Pain in jaw [None]
  - Product dosage form issue [None]
  - Jaw disorder [None]
  - Device issue [None]

NARRATIVE: CASE EVENT DATE: 20241121
